FAERS Safety Report 6819764-2 (Version None)
Quarter: 2010Q3

REPORT INFORMATION
  Report Type: 
  Country: None (occurrence: None)
  Receive Date: 20100707
  Receipt Date: 20100622
  Transmission Date: 20110219
  Serious: Yes (Hospitalization)
  Sender: FDA-Public Use
  Company Number: US-JNJFOC-20100701104

PATIENT
  Sex: Female

DRUGS (6)
  1. CHILDREN'S MOTRIN [Suspect]
     Indication: ARTHRALGIA
  2. CHILDREN'S MOTRIN [Suspect]
     Indication: PYREXIA
  3. CHILDREN'S MOTRIN [Suspect]
     Indication: HEADACHE
  4. CHILDREN'S TYLENOL PLUS MULTI-SYMPTOM COLD [Suspect]
     Indication: ARTHRALGIA
     Route: 048
  5. CHILDREN'S TYLENOL PLUS MULTI-SYMPTOM COLD [Suspect]
     Indication: PYREXIA
     Route: 048
  6. CHILDREN'S TYLENOL PLUS MULTI-SYMPTOM COLD [Suspect]
     Indication: HEADACHE
     Route: 048

REACTIONS (3)
  - ABDOMINAL PAIN [None]
  - EPSTEIN-BARR VIRUS INFECTION [None]
  - PRODUCT QUALITY ISSUE [None]
